FAERS Safety Report 10261791 (Version 2)
Quarter: 2014Q2

REPORT INFORMATION
  Report Type: Spontaneous
  Country: US (occurrence: US)
  Receive Date: 20140626
  Receipt Date: 20140627
  Transmission Date: 20141212
  Serious: No
  Sender: FDA-Public Use
  Company Number: US-ASTRAZENECA-2014SE28251

PATIENT
  Age: 22297 Day
  Sex: Male
  Weight: 62.1 kg

DRUGS (30)
  1. BRILINTA [Suspect]
     Indication: PERCUTANEOUS CORONARY INTERVENTION
     Route: 048
     Dates: start: 20140422, end: 20140423
  2. BRILINTA [Suspect]
     Indication: CORONARY ARTERIAL STENT INSERTION
     Route: 048
     Dates: start: 20140422, end: 20140423
  3. TYLENOL [Concomitant]
     Indication: PAIN
  4. TYLENOL [Concomitant]
     Indication: PYREXIA
  5. VITAMIN C [Concomitant]
  6. ASPIRIN [Concomitant]
  7. VITAMIN B COMPLEX [Concomitant]
  8. BACLOFEN(LIORESAL) [Concomitant]
  9. CALCITONIN [Concomitant]
  10. CALCIUM ACETATE [Concomitant]
  11. COREG [Concomitant]
  12. VITAMIN D3 [Concomitant]
  13. PLAVIX [Concomitant]
  14. CRANBERRY FRUIT PO [Concomitant]
  15. CYANOCOBALAMIN [Concomitant]
  16. LOMOTIL [Concomitant]
     Indication: DIARRHOEA
  17. PEPCID [Concomitant]
  18. NEURONTIN [Concomitant]
  19. IMDUR [Concomitant]
  20. LORAZEMPAM [Concomitant]
  21. MISC NATURAL PRODUCTS [Concomitant]
  22. MULTIVITAMIN [Concomitant]
  23. MULTIVITAMIN MINERALS(OCUVITE-LUTIEN) [Concomitant]
  24. FISH OIL [Concomitant]
  25. SKIN PREP WIPES [Concomitant]
  26. PERCOCET [Concomitant]
  27. PRAVACHOL [Concomitant]
  28. PREDNISONE [Concomitant]
  29. THIAMINE [Concomitant]
  30. ZINC SULPHATE [Concomitant]

REACTIONS (3)
  - Submandibular mass [Unknown]
  - Chest discomfort [Unknown]
  - Anaemia [Unknown]
